FAERS Safety Report 7242611-4 (Version None)
Quarter: 2011Q1

REPORT INFORMATION
  Report Type: 
  Country: None (occurrence: None)
  Receive Date: 20110125
  Receipt Date: 20110121
  Transmission Date: 20110831
  Serious: Yes (Other)
  Sender: FDA-Public Use
  Company Number: VE-PFIZER INC-2011007866

PATIENT
  Age: 61 Year
  Sex: Female

DRUGS (2)
  1. ZOLPIDEM [Concomitant]
     Indication: INSOMNIA
     Dosage: 10 MG, 1X/DAY
     Route: 048
  2. ZOLOFT [Suspect]
     Indication: DEPRESSION
     Dosage: 50 MG, 1X/DAY
     Route: 048
     Dates: start: 20100928

REACTIONS (4)
  - GIARDIASIS [None]
  - GASTRITIS [None]
  - VISION BLURRED [None]
  - WEIGHT DECREASED [None]
